FAERS Safety Report 6411909-1 (Version None)
Quarter: 2009Q4

REPORT INFORMATION
  Report Type: 
  Country: None (occurrence: None)
  Receive Date: 20091023
  Receipt Date: 20091015
  Transmission Date: 20100525
  Serious: Yes (Other)
  Sender: FDA-Public Use
  Company Number: BR-PFIZER INC-2009284168

PATIENT
  Age: 54 Year

DRUGS (5)
  1. DEPO-PROVERA [Suspect]
     Indication: OFF LABEL USE
     Dosage: 150 MG, EVERY 3 MONTHS
     Route: 030
     Dates: start: 20010101, end: 20050101
  2. DEPO-PROVERA [Suspect]
     Indication: DYSMENORRHOEA
  3. SIBUTRAMINE HYDROCHLORIDE [Concomitant]
     Dosage: 15 MG, 1X/DAY
     Route: 048
     Dates: start: 20040101, end: 20070101
  4. OLCADIL [Concomitant]
     Dosage: 0.5 MG, 1X/DAY
     Route: 048
     Dates: start: 20040101, end: 20070101
  5. CENTRUM [Concomitant]
     Dosage: 1 TABLET DAILY
     Route: 048

REACTIONS (5)
  - BREAST CANCER STAGE I [None]
  - FLUID RETENTION [None]
  - MAMMOGRAM ABNORMAL [None]
  - OSTEOARTHRITIS [None]
  - WEIGHT INCREASED [None]
